FAERS Safety Report 23838096 (Version 5)
Quarter: 2024Q4

REPORT INFORMATION
  Report Type: Report from Study
  Country: JP (occurrence: JP)
  Receive Date: 20240509
  Receipt Date: 20241002
  Transmission Date: 20250115
  Serious: Yes (Death, Life-Threatening, Other)
  Sender: DAIICHI
  Company Number: JP-DSJP-DSJ-2024-119642AA

PATIENT
  Age: 74 Year
  Sex: Female
  Weight: 61.3 kg

DRUGS (5)
  1. ENHERTU [Suspect]
     Active Substance: FAM-TRASTUZUMAB DERUXTECAN-NXKI
     Indication: HER2 low breast cancer
     Dosage: 5.4 MG/KG, ONCE EVERY 3 WK
     Route: 041
     Dates: start: 20240119, end: 20240119
  2. NK1 RECEPTOR ANTAGONIST [Concomitant]
     Indication: Antiemetic supportive care
     Dosage: UNK
     Route: 065
  3. DEXAMETHASONE SODIUM PHOSPHATE [Concomitant]
     Active Substance: DEXAMETHASONE SODIUM PHOSPHATE
     Indication: Antiemetic supportive care
     Dosage: UNK
     Route: 042
  4. DEXAMETHASONE [Concomitant]
     Active Substance: DEXAMETHASONE
     Indication: Antiemetic supportive care
     Dosage: UNK
     Route: 048
  5. 5-HT3 RECEPTOR ANTAGONIST (1st GENERATION) [Concomitant]
     Indication: Antiemetic supportive care
     Dosage: UNK
     Route: 065

REACTIONS (5)
  - Febrile neutropenia [Fatal]
  - Sepsis [Not Recovered/Not Resolved]
  - Multiple organ dysfunction syndrome [Not Recovered/Not Resolved]
  - Disease progression [Fatal]
  - Nausea [Unknown]

NARRATIVE: CASE EVENT DATE: 20240101
